FAERS Safety Report 9192487 (Version 1)
Quarter: 2013Q1

REPORT INFORMATION
  Report Type: Spontaneous
  Country: US (occurrence: None)
  Receive Date: 20130326
  Receipt Date: 20130326
  Transmission Date: 20140127
  Serious: Yes (Hospitalization)
  Sender: FDA-Public Use
  Company Number: None

PATIENT
  Sex: Male
  Weight: 88 kg

DRUGS (8)
  1. CYCLOPHOSPHAMIDE [Suspect]
  2. CYTARABINE [Suspect]
  3. DEXAMETHASONE [Suspect]
  4. DOXORUBICIN HYDROCHLORIDE [Suspect]
  5. METHOTREXATE [Suspect]
  6. PEGASPARGASE [Suspect]
  7. THIOGUANINE [Suspect]
  8. VINCRISTINE SULFATE [Suspect]

REACTIONS (4)
  - White blood cell count decreased [None]
  - Haemoglobin decreased [None]
  - Neutrophil count decreased [None]
  - Platelet count decreased [None]
